FAERS Safety Report 5391153-X (Version None)
Quarter: 2007Q3

REPORT INFORMATION
  Report Type: 
  Country: None (occurrence: None)
  Receive Date: 20070719
  Receipt Date: 20070716
  Transmission Date: 20080115
  Serious: Yes (Life-Threatening, Hospitalization)
  Sender: FDA-Public Use
  Company Number: PHBS2007NL11494

PATIENT
  Age: 28 Year
  Sex: Female
  Weight: 63 kg

DRUGS (7)
  1. CLOZAPINE [Suspect]
     Indication: PSYCHOTIC DISORDER
     Dosage: 750 MG/D
     Route: 065
     Dates: start: 20061213, end: 20070522
  2. TRYPTIZOL [Concomitant]
     Dosage: 75 MG, QD
     Dates: start: 19990101
  3. AMITRIPTYLINE HCL [Concomitant]
     Dosage: 25 MG, QD
     Dates: start: 19990101
  4. CISORDINOL [Concomitant]
     Dosage: 25 MG, QD
     Dates: start: 19980101
  5. PROMETHAZINE [Concomitant]
     Dosage: 25 MG, QD
     Dates: start: 19980101
  6. XANAX [Concomitant]
     Dosage: 1 MG, QD
  7. ZOPICLON [Concomitant]
     Dosage: 7.5 MG, QD
     Dates: start: 20040101

REACTIONS (1)
  - DISSOCIATIVE DISORDER [None]
